FAERS Safety Report 7065080-6 (Version None)
Quarter: 2010Q4

REPORT INFORMATION
  Report Type: 
  Country: None (occurrence: None)
  Receive Date: 20101019
  Receipt Date: 20101004
  Transmission Date: 20110411
  Serious: Yes (Hospitalization)
  Sender: FDA-Public Use
  Company Number: GER/GER/10/0016214

PATIENT
  Age: 84 Year
  Sex: Female
  Weight: 55 kg

DRUGS (5)
  1. CITALOPRAM HYDROBROMIDE [Suspect]
     Indication: DEPRESSION
     Dosage: 20 MG, 1 IN 1 D, ORAL
     Route: 048
     Dates: start: 20100301, end: 20100816
  2. BELOC-ZOK MITE (METOPROLOL SUCCINATE) [Suspect]
     Indication: HYPERTENSION
     Dosage: 47.5 MG, 2 IN 1 D, ORAL; 95 MG, 2 IN 1 D, ORAL
     Route: 048
     Dates: start: 20000101
  3. BELOC-ZOK MITE (METOPROLOL SUCCINATE) [Suspect]
     Indication: HYPERTENSION
     Dosage: 47.5 MG, 2 IN 1 D, ORAL; 95 MG, 2 IN 1 D, ORAL
     Route: 048
     Dates: start: 20100904
  4. FALITHROM (PHENPROCOUMON) [Suspect]
     Indication: ATRIAL FIBRILLATION
     Dosage: 2.78 MG, 1 IN 1 D, ORAL
     Route: 048
     Dates: start: 20100810, end: 20100817
  5. MOLSIDOMINE (MOLSIDOMINE) [Concomitant]

REACTIONS (1)
  - LIVER DISORDER [None]
